FAERS Safety Report 19932286 (Version 1)
Quarter: 2021Q4

REPORT INFORMATION
  Report Type: Spontaneous
  Country: US (occurrence: US)
  Receive Date: 20211007
  Receipt Date: 20211007
  Transmission Date: 20220304
  Serious: Yes (Death)
  Sender: FDA-Public Use
  Company Number: None

PATIENT
  Age: 95 Year
  Sex: Female
  Weight: 68.3 kg

DRUGS (5)
  1. TOCILIZUMAB [Suspect]
     Active Substance: TOCILIZUMAB
     Indication: COVID-19
     Dosage: ?          OTHER FREQUENCY:ONCE;
     Route: 042
     Dates: start: 20211004, end: 20211004
  2. TOCILIZUMAB [Suspect]
     Active Substance: TOCILIZUMAB
     Dosage: ?          OTHER FREQUENCY:ONCE;
     Route: 042
     Dates: start: 20211004, end: 20211004
  3. REMDESIVIR [Concomitant]
     Active Substance: REMDESIVIR
     Dates: start: 20211002, end: 20211004
  4. DEXAMETHASONE [Concomitant]
     Active Substance: DEXAMETHASONE
     Dates: start: 20211004, end: 20211004
  5. DEXAMETHASONE [Concomitant]
     Active Substance: DEXAMETHASONE
     Dates: start: 20211002, end: 20211004

REACTIONS (11)
  - Chronic respiratory failure [None]
  - Metabolic acidosis [None]
  - Acute kidney injury [None]
  - Troponin increased [None]
  - Atrial fibrillation [None]
  - Ischaemic cerebral infarction [None]
  - Chronic kidney disease [None]
  - Myocardial ischaemia [None]
  - Mitral valve calcification [None]
  - Agitation [None]
  - Degenerative mitral valve disease [None]

NARRATIVE: CASE EVENT DATE: 20211005
